FAERS Safety Report 5508673-7 (Version None)
Quarter: 2007Q4

REPORT INFORMATION
  Report Type: 
  Country: None (occurrence: None)
  Receive Date: 20071031
  Receipt Date: 20070613
  Transmission Date: 20080405
  Serious: No
  Sender: FDA-Public Use
  Company Number: 2007PV033033

PATIENT
  Age: 44 Year
  Sex: Male
  Weight: 151.5014 kg

DRUGS (4)
  1. SYMLIN [Suspect]
     Indication: TYPE 2 DIABETES MELLITUS
     Dosage: 120 MCG;BID;SC ; 60 MCG;BID;SC
     Route: 058
     Dates: start: 20070606, end: 20070609
  2. SYMLIN [Suspect]
     Indication: TYPE 2 DIABETES MELLITUS
     Dosage: 120 MCG;BID;SC ; 60 MCG;BID;SC
     Route: 058
     Dates: start: 20070610
  3. NOVOLOG [Concomitant]
  4. METFORMIN HCL [Concomitant]

REACTIONS (4)
  - DECREASED APPETITE [None]
  - DYSGEUSIA [None]
  - INJECTION SITE PAIN [None]
  - NAUSEA [None]
